FAERS Safety Report 5741570-0 (Version None)
Quarter: 2008Q2

REPORT INFORMATION
  Report Type: 
  Country: None (occurrence: None)
  Receive Date: 20080519
  Receipt Date: 20080401
  Transmission Date: 20081010
  Serious: Yes (Life-Threatening)
  Sender: FDA-Public Use
  Company Number: JP-BAYER-200810612BYL

PATIENT
  Age: 67 Year
  Sex: Male
  Weight: 41 kg

DRUGS (3)
  1. CIPROXAN-I.V. [Suspect]
     Indication: PNEUMONIA
     Dosage: TOTAL DAILY DOSE: 600 MG  UNIT DOSE: 300 MG
     Route: 041
     Dates: start: 20080229, end: 20080301
  2. CEFMETAZON [Concomitant]
     Dosage: TOTAL DAILY DOSE: 2 G
     Route: 042
     Dates: start: 20080214, end: 20080223
  3. BFLUID [Concomitant]

REACTIONS (1)
  - HYPOGLYCAEMIA [None]
